FAERS Safety Report 6596884-1 (Version None)
Quarter: 2010Q1

REPORT INFORMATION
  Report Type: 
  Country: None (occurrence: None)
  Receive Date: 20100223
  Receipt Date: 20100213
  Transmission Date: 20100710
  Serious: Yes (Hospitalization, Other)
  Sender: FDA-Public Use
  Company Number: CA-ABBOTT-08P-028-0479569-00

PATIENT
  Sex: Female
  Weight: 54.48 kg

DRUGS (3)
  1. HUMIRA [Suspect]
     Indication: CROHN'S DISEASE
     Route: 058
     Dates: start: 20070503
  2. DEMEROL [Suspect]
     Indication: POSTOPERATIVE ANALGESIA
  3. DEMEROL [Suspect]
     Indication: FEMALE GENITAL OPERATION

REACTIONS (11)
  - APNOEA [None]
  - CARDIAC ARREST [None]
  - CHEST PAIN [None]
  - CLAVICLE FRACTURE [None]
  - COAGULOPATHY [None]
  - CYST [None]
  - DYSPNOEA [None]
  - GRAND MAL CONVULSION [None]
  - HAEMATOMA [None]
  - HYPOTENSION [None]
  - UTERINE LEIOMYOMA [None]
